FAERS Safety Report 9703877 (Version 2)
Quarter: 2013Q4

REPORT INFORMATION
  Report Type: Other
  Country: PL (occurrence: PL)
  Receive Date: 20131122
  Receipt Date: 20131212
  Transmission Date: 20140711
  Serious: Yes (Hospitalization)
  Sender: FDA-Public Use
  Company Number: PL-US-EMD SERONO, INC.-7250446

PATIENT
  Age: 11 Year
  Sex: Female
  Weight: 61 kg

DRUGS (7)
  1. SOMATROPIN [Suspect]
     Indication: HORMONE REPLACEMENT THERAPY
     Dosage: 0.03 MG/KG BODY MASS.
  2. SOMATROPIN [Suspect]
     Dosage: AT A LOWER DOSE
  3. SOMATROPIN [Suspect]
     Dosage: 0.03 MG/KG BODY MASS.
  4. EUTHYROX [Concomitant]
     Indication: HORMONE REPLACEMENT THERAPY
  5. HYDROCORTISONE                     /00028604/ [Concomitant]
     Indication: HORMONE REPLACEMENT THERAPY
     Dosage: 10-15MG PER DAY
  6. MINIRIN                            /00361902/ [Concomitant]
     Indication: THYROID HORMONE REPLACEMENT THERAPY
     Dosage: 0.05-0.075MG
  7. LAMOTRIGIN [Concomitant]
     Indication: EPILEPSY

REACTIONS (4)
  - Somnolence [Recovered/Resolved]
  - Sleep apnoea syndrome [Recovered/Resolved]
  - Adenoidal hypertrophy [Recovered/Resolved]
  - Tonsillar hypertrophy [Recovered/Resolved]
